FAERS Safety Report 12986639 (Version 1)
Quarter: 2016Q4

REPORT INFORMATION
  Report Type: Spontaneous
  Country: US (occurrence: US)
  Receive Date: 20161130
  Receipt Date: 20161130
  Transmission Date: 20170207
  Serious: Yes (Other)
  Sender: FDA-Public Use
  Company Number: US-ELI_LILLY_AND_COMPANY-US201611007683

PATIENT
  Sex: Female

DRUGS (1)
  1. LARTRUVO [Suspect]
     Active Substance: OLARATUMAB
     Indication: SOFT TISSUE SARCOMA
     Dosage: 15 MG/KG, UNKNOWN
     Route: 065
     Dates: start: 20161117, end: 20161117

REACTIONS (3)
  - Off label use [Unknown]
  - Pruritus [Unknown]
  - Blood pressure decreased [Unknown]

NARRATIVE: CASE EVENT DATE: 20161117
